FAERS Safety Report 7408395-1 (Version None)
Quarter: 2011Q2

REPORT INFORMATION
  Report Type: 
  Country: None (occurrence: None)
  Receive Date: 20110404
  Receipt Date: 20110317
  Transmission Date: 20111010
  Serious: Yes (Disabling, Other)
  Sender: FDA-Public Use
  Company Number: 2011MA002835

PATIENT
  Sex: Female

DRUGS (1)
  1. METOCLOPRAMIDE [Suspect]
     Indication: GASTROINTESTINAL DISORDER

REACTIONS (10)
  - DYSKINESIA [None]
  - IMPAIRED WORK ABILITY [None]
  - EXCESSIVE EYE BLINKING [None]
  - ANXIETY [None]
  - ECONOMIC PROBLEM [None]
  - FAMILY STRESS [None]
  - TARDIVE DYSKINESIA [None]
  - UNEVALUABLE EVENT [None]
  - EXTRAPYRAMIDAL DISORDER [None]
  - PAIN [None]
